FAERS Safety Report 5728947-4 (Version None)
Quarter: 2008Q2

REPORT INFORMATION
  Report Type: 
  Country: None (occurrence: None)
  Receive Date: 20080430
  Receipt Date: 20080124
  Transmission Date: 20081010
  Serious: No
  Sender: FDA-Public Use
  Company Number: 2008PV034022

PATIENT
  Age: 52 Year
  Sex: Male
  Weight: 182.346 kg

DRUGS (8)
  1. SYMLIN [Suspect]
     Indication: TYPE 2 DIABETES MELLITUS
     Dosage: 120 MCG;TID;SC ; 90 MCG;TID;SC ; 60 MCG;TID;SC ; 30 MCG;TID;SC
     Route: 058
     Dates: start: 20070101, end: 20070101
  2. SYMLIN [Suspect]
     Indication: TYPE 2 DIABETES MELLITUS
     Dosage: 120 MCG;TID;SC ; 90 MCG;TID;SC ; 60 MCG;TID;SC ; 30 MCG;TID;SC
     Route: 058
     Dates: start: 20070101, end: 20070101
  3. SYMLIN [Suspect]
     Indication: TYPE 2 DIABETES MELLITUS
     Dosage: 120 MCG;TID;SC ; 90 MCG;TID;SC ; 60 MCG;TID;SC ; 30 MCG;TID;SC
     Route: 058
     Dates: start: 20071101, end: 20070101
  4. SYMLIN [Suspect]
     Indication: TYPE 2 DIABETES MELLITUS
     Dosage: 120 MCG;TID;SC ; 90 MCG;TID;SC ; 60 MCG;TID;SC ; 30 MCG;TID;SC
     Route: 058
     Dates: start: 20070101, end: 20080124
  5. GLYBURIDE [Concomitant]
  6. METFORMIN [Concomitant]
  7. NOVOLIN 70/30 [Concomitant]
  8. NOVOLIN R [Concomitant]

REACTIONS (1)
  - DIARRHOEA [None]
